FAERS Safety Report 21910239 (Version 1)
Quarter: 2023Q1

REPORT INFORMATION
  Report Type: Spontaneous
  Country: US (occurrence: US)
  Receive Date: 20230125
  Receipt Date: 20230125
  Transmission Date: 20230417
  Serious: No
  Sender: FDA-Public Use
  Company Number: US-ALLERGAN-2210334US

PATIENT
  Sex: Female

DRUGS (1)
  1. BOTOX [Suspect]
     Active Substance: ONABOTULINUMTOXINA
     Indication: Migraine
     Dosage: 155 UNITS, SINGLE
     Dates: start: 202203, end: 202203

REACTIONS (5)
  - Ear discomfort [Unknown]
  - Pain in jaw [Unknown]
  - Neck pain [Unknown]
  - Hypoaesthesia [Unknown]
  - Dysphagia [Unknown]

NARRATIVE: CASE EVENT DATE: 20220301
